FAERS Safety Report 5224359-0 (Version None)
Quarter: 2007Q1

REPORT INFORMATION
  Report Type: 
  Country: None (occurrence: None)
  Receive Date: 20070130
  Receipt Date: 20070122
  Transmission Date: 20070707
  Serious: Yes (Hospitalization)
  Sender: FDA-Public Use
  Company Number: US-BOEHRINGER INGELHEIM PHARMACEUTICALS, INC.-2007-BP-01086BP

PATIENT
  Sex: Female

DRUGS (5)
  1. COMBIVENT [Suspect]
     Indication: CHRONIC OBSTRUCTIVE PULMONARY DISEASE
     Route: 055
  2. DUONEB [Concomitant]
  3. MUCINEX [Concomitant]
  4. ZOCOR [Concomitant]
  5. VITAMIN [Concomitant]

REACTIONS (2)
  - HEARING IMPAIRED [None]
  - HYPOAESTHESIA [None]
